FAERS Safety Report 19057373 (Version 1)
Quarter: 2021Q1

REPORT INFORMATION
  Report Type: Spontaneous
  Country: AU (occurrence: AU)
  Receive Date: 20210324
  Receipt Date: 20210324
  Transmission Date: 20210420
  Serious: Yes (Other)
  Sender: FDA-Public Use
  Company Number: AU-AMERICAN REGENT INC-2021000739

PATIENT
  Age: 37 Year
  Sex: Female

DRUGS (3)
  1. FERINJECT [Suspect]
     Active Substance: FERRIC CARBOXYMALTOSE
     Indication: PRODUCT USED FOR UNKNOWN INDICATION
     Dosage: UNK
  2. MALTOFER                           /00023548/ [Suspect]
     Active Substance: IRON POLYMALTOSE
     Indication: PRODUCT USED FOR UNKNOWN INDICATION
     Dosage: 20 ML, 1 IN 1 D (10 MG/ML SYRUP)
     Route: 048
  3. MALTOFER                           /00023548/ [Suspect]
     Active Substance: IRON POLYMALTOSE
     Dosage: 1 DOSAGE FORM, 1 IN 1 D (FILM?COATED TABLETS)
     Route: 048
     Dates: start: 202102, end: 2021

REACTIONS (4)
  - Hypersensitivity [Unknown]
  - Gastrooesophageal reflux disease [Unknown]
  - Blood iron decreased [Unknown]
  - Intestinal obstruction [Unknown]

NARRATIVE: CASE EVENT DATE: 202102
